FAERS Safety Report 6338240-7 (Version None)
Quarter: 2009Q3

REPORT INFORMATION
  Report Type: 
  Country: None (occurrence: None)
  Receive Date: 20090902
  Receipt Date: 20090828
  Transmission Date: 20100115
  Serious: Yes (Life-Threatening)
  Sender: FDA-Public Use
  Company Number: IT-SANOFI-SYNTHELABO-A06200900397

PATIENT
  Sex: Male

DRUGS (3)
  1. LEDERFOLIN [Concomitant]
     Indication: COLON CANCER
     Route: 065
  2. ELOXATIN [Suspect]
     Indication: COLON CANCER
     Route: 041
     Dates: start: 20090728, end: 20090728
  3. FLUOROURACILE TEVA [Concomitant]
     Indication: COLON CANCER
     Route: 042

REACTIONS (2)
  - DYSPNOEA [None]
  - VASOSPASM [None]
